FAERS Safety Report 9998932 (Version 1)
Quarter: 2014Q1

REPORT INFORMATION
  Report Type: Report from Study
  Country: US (occurrence: US)
  Receive Date: 20140312
  Receipt Date: 20140312
  Transmission Date: 20141002
  Serious: Yes (Other)
  Sender: FDA-Public Use
  Company Number: US-ROCHE-1357814

PATIENT
  Age: 59 Year
  Sex: Female

DRUGS (7)
  1. XOLAIR [Suspect]
     Indication: ASTHMA
     Route: 065
     Dates: start: 201402
  2. PULMICORT [Concomitant]
  3. ALBUTEROL [Concomitant]
  4. CETRIZINE [Concomitant]
  5. VENTOLIN [Concomitant]
  6. SPIRIVA [Concomitant]
  7. ZANTAC [Concomitant]

REACTIONS (10)
  - Eye swelling [Unknown]
  - Eye swelling [Unknown]
  - Eyelid oedema [Unknown]
  - Tremor [Unknown]
  - Thinking abnormal [Unknown]
  - Pharyngeal oedema [Unknown]
  - Insomnia [Unknown]
  - Restless legs syndrome [Unknown]
  - Nasopharyngitis [Recovering/Resolving]
  - Asthma [Unknown]
